FAERS Safety Report 24712400 (Version 1)
Quarter: 2024Q4

REPORT INFORMATION
  Report Type: Spontaneous
  Country: US (occurrence: JP)
  Receive Date: 20241209
  Receipt Date: 20241209
  Transmission Date: 20250114
  Serious: Yes (Hospitalization)
  Sender: CATALYST PHARMA
  Company Number: US-CATALYSTPHARMACEUTICALPARTNERS-JP-CATA-24-01419

PATIENT
  Age: 2 Year
  Sex: Male

DRUGS (6)
  1. FYCOMPA [Suspect]
     Active Substance: PERAMPANEL
     Indication: Epilepsy
     Dosage: 1 MILLIGRAM, 1 IN 1 DAY
     Route: 048
     Dates: start: 20230706, end: 20230801
  2. FYCOMPA [Suspect]
     Active Substance: PERAMPANEL
     Indication: Encephalitis autoimmune
  3. PHENOBARBITAL SODIUM [Suspect]
     Active Substance: PHENOBARBITAL SODIUM
     Indication: Epilepsy
     Dosage: 60.0 MILLIGRAM(S) (30 MILLIGRAM(S), 1 IN 12 HOUR)
     Route: 042
     Dates: start: 20230704, end: 20230707
  4. PHENOBARBITAL [Suspect]
     Active Substance: PHENOBARBITAL
     Indication: Epilepsy
     Dosage: 60.0 MILLIGRAM(S) (30 MILLIGRAM(S), 1 IN 12 HOUR)
     Route: 042
     Dates: start: 20230707, end: 20230731
  5. PREDNISOLONE [Concomitant]
     Active Substance: PREDNISOLONE
     Indication: Product used for unknown indication
     Dosage: UNKNOWN
     Route: 065
  6. SIMPLE SYRUP [Concomitant]
     Active Substance: CITRIC ACID MONOHYDRATE\SUCROSE
     Indication: Product used for unknown indication
     Dosage: UNKNOWN
     Route: 065

REACTIONS (2)
  - Toxic epidermal necrolysis [Recovering/Resolving]
  - Off label use [Unknown]

NARRATIVE: CASE EVENT DATE: 20230706
